FAERS Safety Report 11078458 (Version 1)
Quarter: 2015Q2

REPORT INFORMATION
  Report Type: Report from Study
  Country: US (occurrence: US)
  Receive Date: 20150430
  Receipt Date: 20150430
  Transmission Date: 20150821
  Serious: Yes (Hospitalization)
  Sender: FDA-Public Use
  Company Number: US-ABBVIE-15P-163-1380187-00

PATIENT
  Sex: Female
  Weight: 85.35 kg

DRUGS (2)
  1. VICODIN [Suspect]
     Active Substance: ACETAMINOPHEN\HYDROCODONE BITARTRATE
     Indication: FIBROMYALGIA
     Route: 065
     Dates: start: 2001, end: 2008
  2. VICODIN [Suspect]
     Active Substance: ACETAMINOPHEN\HYDROCODONE BITARTRATE
     Dosage: 20-30 TABLETS PER DAY
     Route: 065
     Dates: start: 2008, end: 201112

REACTIONS (3)
  - Energy increased [Recovered/Resolved]
  - Drug dependence [Recovering/Resolving]
  - Euphoric mood [Recovered/Resolved]

NARRATIVE: CASE EVENT DATE: 2001
